FAERS Safety Report 7559445-3 (Version None)
Quarter: 2011Q2

REPORT INFORMATION
  Report Type: 
  Country: None (occurrence: None)
  Receive Date: 20110621
  Receipt Date: 20110613
  Transmission Date: 20111010
  Serious: Yes (Hospitalization)
  Sender: FDA-Public Use
  Company Number: US-AMGEN-USASP2011019822

PATIENT
  Age: 48 Year
  Sex: Male

DRUGS (1)
  1. ENBREL [Suspect]
     Indication: RHEUMATOID ARTHRITIS
     Dosage: 50 MG, QWK
     Dates: start: 20000101

REACTIONS (8)
  - ACUTE RESPIRATORY DISTRESS SYNDROME [None]
  - ABDOMINAL PAIN [None]
  - GASTROINTESTINAL ANASTOMOTIC LEAK [None]
  - PERIDIVERTICULAR ABSCESS [None]
  - PYREXIA [None]
  - COLOSTOMY [None]
  - POST PROCEDURAL COMPLICATION [None]
  - TESTICULAR PAIN [None]
